FAERS Safety Report 4727446-6 (Version None)
Quarter: 2005Q3

REPORT INFORMATION
  Report Type: 
  Country: None (occurrence: None)
  Receive Date: 20050727
  Receipt Date: 20050727
  Transmission Date: 20060218
  Serious: Yes (Hospitalization)
  Sender: FDA-Public Use
  Company Number: None

PATIENT
  Age: 74 Year
  Sex: Male
  Weight: 88 kg

DRUGS (11)
  1. COUMADIN [Suspect]
     Indication: AORTIC VALVE REPLACEMENT
     Dosage: 4 MG Q DAILY [CHRONIC]
  2. COUMADIN [Suspect]
     Indication: ATRIAL FIBRILLATION
     Dosage: 4 MG Q DAILY [CHRONIC]
  3. TOPROL-XL [Concomitant]
  4. MULTI-VITAMIN [Concomitant]
  5. VERAPAMIL [Concomitant]
  6. VASOTEC RPD [Concomitant]
  7. PRILOSEC [Concomitant]
  8. LASIX [Concomitant]
  9. ADVAIR DISKUS 100/50 [Concomitant]
  10. POTASSIUM CHLORIDE [Concomitant]
  11. ATROVENT [Concomitant]

REACTIONS (6)
  - BLOOD PRESSURE SYSTOLIC INCREASED [None]
  - DYSPNOEA [None]
  - HAEMATOCRIT DECREASED [None]
  - HAEMOGLOBIN DECREASED [None]
  - INTERNATIONAL NORMALISED RATIO INCREASED [None]
  - MELAENA [None]
